FAERS Safety Report 23705541 (Version 1)
Quarter: 2024Q2

REPORT INFORMATION
  Report Type: Report from Study
  Country: CN (occurrence: CN)
  Receive Date: 20240404
  Receipt Date: 20240404
  Transmission Date: 20240715
  Serious: Yes (Other)
  Sender: FDA-Public Use
  Company Number: CN-SUN PHARMACEUTICAL INDUSTRIES LTD-2024R1-439559

PATIENT
  Sex: Male

DRUGS (4)
  1. DEXAMETHASONE [Suspect]
     Active Substance: DEXAMETHASONE
     Indication: Renal impairment
     Dosage: 20-40MG
     Route: 048
  2. BORTEZOMIB [Suspect]
     Active Substance: BORTEZOMIB
     Indication: Renal impairment
     Dosage: 1.3 MILLIGRAM/SQ. METER
     Route: 058
  3. THALIDOMIDE [Suspect]
     Active Substance: THALIDOMIDE
     Indication: Renal impairment
     Dosage: 100 MILLIGRAM
     Route: 048
  4. DARATUMUMAB [Suspect]
     Active Substance: DARATUMUMAB
     Indication: Renal impairment
     Dosage: 16 MILLIGRAM/KILOGRAM
     Route: 042

REACTIONS (1)
  - Pancreatitis acute [Unknown]
